FAERS Safety Report 8343842-2 (Version None)
Quarter: 2012Q2

REPORT INFORMATION
  Report Type: 
  Country: None (occurrence: None)
  Receive Date: 20120508
  Receipt Date: 20100820
  Transmission Date: 20120825
  Serious: No
  Sender: FDA-Public Use
  Company Number: US-TEVA-2010004453

PATIENT
  Sex: Female
  Weight: 72.64 kg

DRUGS (8)
  1. LIPITOR [Concomitant]
  2. CARDURA [Concomitant]
     Dates: end: 20100801
  3. ZOLOFT [Concomitant]
  4. IMITREX [Concomitant]
  5. SECTRAL [Concomitant]
  6. TREANDA [Suspect]
     Indication: MULTIPLE MYELOMA
     Route: 042
     Dates: start: 20100811, end: 20100812
  7. PROTONIX [Concomitant]
  8. WELLBUTRIN [Concomitant]

REACTIONS (2)
  - MALAISE [None]
  - PYREXIA [None]
